FAERS Safety Report 26127601 (Version 1)
Quarter: 2025Q4

REPORT INFORMATION
  Report Type: Spontaneous
  Country: US (occurrence: US)
  Receive Date: 20251206
  Receipt Date: 20251206
  Transmission Date: 20260117
  Serious: Yes (Hospitalization, Other)
  Sender: AMNEAL
  Company Number: US-AMNEAL PHARMACEUTICALS-2025-AMRX-04693

PATIENT
  Age: 37 Year
  Sex: Female

DRUGS (2)
  1. TRIENTINE HYDROCHLORIDE [Suspect]
     Active Substance: TRIENTINE HYDROCHLORIDE
     Indication: Hepato-lenticular degeneration
     Dosage: (TETA 2HCL)
     Route: 065
  2. TRIENTINE HYDROCHLORIDE [Suspect]
     Active Substance: TRIENTINE HYDROCHLORIDE
     Dosage: REINTRODUCED (TETA 4HCL FORMULATION)
     Route: 065

REACTIONS (1)
  - Enteritis [Recovered/Resolved]
